FAERS Safety Report 9656668 (Version 3)
Quarter: 2013Q4

REPORT INFORMATION
  Report Type: Report from Study
  Country: US (occurrence: US)
  Receive Date: 20131030
  Receipt Date: 20131202
  Transmission Date: 20140711
  Serious: Yes (Other)
  Sender: FDA-Public Use
  Company Number: US-PFIZER INC-2013306281

PATIENT
  Sex: Male

DRUGS (14)
  1. RAPAMUNE [Suspect]
     Indication: TRANSPLANT
     Dosage: 4 MG, QD
     Route: 064
     Dates: start: 2000, end: 20120613
  2. RAPAMUNE [Suspect]
     Dosage: 5 MG, QD
     Route: 064
     Dates: start: 20120614, end: 20120624
  3. RAPAMUNE [Suspect]
     Dosage: 6 MG, QD
     Route: 064
     Dates: start: 20120625, end: 20120705
  4. RAPAMUNE [Suspect]
     Dosage: 7 MG, QD
     Route: 064
     Dates: start: 20120706, end: 20120719
  5. RAPAMUNE [Suspect]
     Dosage: 8 MG, QD
     Route: 064
     Dates: start: 20120720, end: 20121017
  6. RAPAMUNE [Suspect]
     Dosage: 9 MG, QD
     Route: 064
     Dates: start: 20121018, end: 20121022
  7. PREDNISONE [Concomitant]
     Indication: TRANSPLANT
     Dosage: 5 MG, 1X/DAY
     Route: 064
  8. OMEGA-3-ACID ETHYL ESTER [Concomitant]
     Dosage: 2 G, 2X/DAY
     Route: 064
  9. METOPROLOL SUCCINATE [Concomitant]
     Indication: HYPERTENSION
     Dosage: UNK
     Route: 064
  10. LABETALOL HYDROCHLORIDE [Concomitant]
     Indication: HYPERTENSION
     Dosage: UNK
     Route: 064
  11. FUROSEMIDE [Concomitant]
     Dosage: 20 MG, 1X/DAY
     Route: 064
  12. BACTRIM [Concomitant]
     Dosage: UNK
     Route: 064
  13. VITAMINS NOS [Concomitant]
  14. IRON [Concomitant]

REACTIONS (2)
  - Maternal exposure during pregnancy [Recovering/Resolving]
  - Premature baby [Recovering/Resolving]
